FAERS Safety Report 6952005-4 (Version None)
Quarter: 2010Q3

REPORT INFORMATION
  Report Type: 
  Country: None (occurrence: None)
  Receive Date: 20100829
  Receipt Date: 20100422
  Transmission Date: 20110219
  Serious: No
  Sender: FDA-Public Use
  Company Number: US-ABBOTT-10P-163-0640228-00

PATIENT
  Sex: Male
  Weight: 74.91 kg

DRUGS (21)
  1. NIASPAN [Suspect]
     Indication: HIGH DENSITY LIPOPROTEIN DECREASED
     Dates: start: 20100325
  2. NIASPAN [Suspect]
     Indication: BLOOD CHOLESTEROL INCREASED
  3. BENICAR HCT [Concomitant]
     Indication: PRODUCT USED FOR UNKNOWN INDICATION
     Dosage: 40/12.5MG DAILY
     Route: 048
  4. ASPIRIN [Concomitant]
     Indication: PRODUCT USED FOR UNKNOWN INDICATION
     Route: 048
  5. PRILOSEC [Concomitant]
     Indication: PRODUCT USED FOR UNKNOWN INDICATION
     Route: 048
  6. SAL PALMETTO [Concomitant]
     Indication: SUPPLEMENTATION THERAPY
     Route: 048
  7. GRAPE SEED [Concomitant]
     Indication: SUPPLEMENTATION THERAPY
     Route: 048
  8. RISVERITROL [Concomitant]
     Indication: SUPPLEMENTATION THERAPY
     Route: 048
  9. GREEN TEA EXTRACT [Concomitant]
     Indication: SUPPLEMENTATION THERAPY
     Route: 048
  10. POMEGRANITE EXTRACT [Concomitant]
     Indication: SUPPLEMENTATION THERAPY
     Route: 048
  11. FISH OIL [Concomitant]
     Indication: SUPPLEMENTATION THERAPY
     Route: 048
  12. METAMUCIL-2 [Concomitant]
     Indication: SUPPLEMENTATION THERAPY
     Route: 048
  13. ACIDOPHILUS [Concomitant]
     Indication: SUPPLEMENTATION THERAPY
     Route: 048
  14. PIQUIN [Concomitant]
     Indication: SUPPLEMENTATION THERAPY
     Route: 048
  15. COQ10 [Concomitant]
     Indication: PRODUCT USED FOR UNKNOWN INDICATION
     Route: 048
  16. CINNAMON [Concomitant]
     Indication: PRODUCT USED FOR UNKNOWN INDICATION
     Route: 048
  17. ALPHA LIPOIC ACID [Concomitant]
     Indication: SUPPLEMENTATION THERAPY
     Route: 048
  18. FIBER-ONE BLEND [Concomitant]
     Indication: PRODUCT USED FOR UNKNOWN INDICATION
     Route: 048
  19. CHROMIUM CHLORIDE [Concomitant]
     Indication: SUPPLEMENTATION THERAPY
     Route: 048
  20. IRON FREE MULTIVITAMIN [Concomitant]
     Indication: SUPPLEMENTATION THERAPY
     Route: 048
  21. HORNY GOAT WEED EXTRACT [Concomitant]
     Indication: SUPPLEMENTATION THERAPY
     Route: 048

REACTIONS (1)
  - PRURITUS [None]
